FAERS Safety Report 5305894-3 (Version None)
Quarter: 2007Q2

REPORT INFORMATION
  Report Type: 
  Country: None (occurrence: None)
  Receive Date: 20070424
  Receipt Date: 20070416
  Transmission Date: 20071010
  Serious: Yes (Other)
  Sender: FDA-Public Use
  Company Number: CA-GLAXOSMITHKLINE-A0647081A

PATIENT
  Age: 65 Year
  Sex: Female
  Weight: 54.5 kg

DRUGS (6)
  1. VALTREX [Suspect]
     Dosage: 1G TWICE PER DAY
     Route: 048
     Dates: start: 20070405, end: 20070409
  2. MICARDIS [Concomitant]
     Indication: HYPERTENSION
     Dosage: 80MG PER DAY
     Dates: start: 20070223
  3. GLYBURIDE [Concomitant]
     Dosage: 5MG PER DAY
     Dates: start: 20060328
  4. METOPROLOL SUCCINATE [Concomitant]
     Indication: HYPERTENSION
     Dosage: 50MG PER DAY
     Dates: start: 20010824
  5. CRESTOR [Concomitant]
     Indication: BLOOD CHOLESTEROL INCREASED
     Dosage: 10MG PER DAY
     Route: 048
     Dates: start: 20070309
  6. SPIRIVA [Concomitant]
     Dosage: 18MG PER DAY
     Dates: start: 20070402

REACTIONS (2)
  - DYSPNOEA [None]
  - JOINT SWELLING [None]
